FAERS Safety Report 4445935-9 (Version None)
Quarter: 2004Q3

REPORT INFORMATION
  Report Type: 
  Country: None (occurrence: None)
  Receive Date: 20040907
  Receipt Date: 20040824
  Transmission Date: 20050211
  Serious: Yes (Hospitalization)
  Sender: FDA-Public Use
  Company Number: 2004-BP-07417AU

PATIENT
  Sex: Female

DRUGS (5)
  1. MOBIC [Suspect]
     Dosage: 15 MG (15 MG, 15 MG ONCE DAILY)
     Route: 048
     Dates: start: 20030915, end: 20040322
  2. AMLODIPINE [Concomitant]
  3. ATENOLOL [Concomitant]
  4. NITROGLYCERIN [Concomitant]
  5. ATORVASTATIN (ATORVASTATIN) [Concomitant]

REACTIONS (4)
  - CHRONIC GRANULOMATOUS DISEASE [None]
  - HAEMODIALYSIS [None]
  - NEPHRITIS INTERSTITIAL [None]
  - RENAL FAILURE ACUTE [None]
